FAERS Safety Report 21519681 (Version 1)
Quarter: 2022Q4

REPORT INFORMATION
  Report Type: Spontaneous
  Country: US (occurrence: None)
  Receive Date: 20221027
  Receipt Date: 20221027
  Transmission Date: 20230113
  Serious: Yes (Hospitalization)
  Sender: FDA-Public Use
  Company Number: None

PATIENT
  Age: 84 Year
  Sex: Female

DRUGS (1)
  1. AFINITOR [Suspect]
     Active Substance: EVEROLIMUS
     Dosage: FREQUENCY : DAILY;?
     Route: 048
     Dates: start: 202101

REACTIONS (6)
  - Blood pressure increased [None]
  - Chest pain [None]
  - Malaise [None]
  - Headache [None]
  - Nausea [None]
  - Dehydration [None]

NARRATIVE: CASE EVENT DATE: 20221024
